FAERS Safety Report 8291323-7 (Version None)
Quarter: 2012Q2

REPORT INFORMATION
  Report Type: 
  Country: None (occurrence: None)
  Receive Date: 20120417
  Receipt Date: 20120412
  Transmission Date: 20120825
  Serious: Yes (Hospitalization)
  Sender: FDA-Public Use
  Company Number: US-GLAXOSMITHKLINE-A0866409A

PATIENT
  Age: 63 Year
  Sex: Female

DRUGS (1)
  1. AVANDIA [Suspect]
     Indication: DIABETES MELLITUS
     Dosage: 4MG TWICE PER DAY
     Dates: start: 20050330, end: 20060614

REACTIONS (7)
  - CARDIAC DISORDER [None]
  - CORONARY ARTERY DISEASE [None]
  - EYE DISORDER [None]
  - EMOTIONAL DISORDER [None]
  - RENAL FAILURE [None]
  - DIABETIC COMPLICATION [None]
  - DIASTOLIC DYSFUNCTION [None]
